FAERS Safety Report 13430292 (Version 1)
Quarter: 2017Q2

REPORT INFORMATION
  Report Type: Spontaneous
  Country: US (occurrence: US)
  Receive Date: 20170411
  Receipt Date: 20170411
  Transmission Date: 20170830
  Serious: Yes (Death)
  Sender: FDA-Public Use
  Company Number: None

PATIENT
  Age: 61 Year
  Sex: Male

DRUGS (1)
  1. TOBRAMYCIN (56AMPS/28DAY) 300MG/5ML NOVARTIS [Suspect]
     Active Substance: TOBRAMYCIN
     Indication: BACTERIAL INFECTION
     Dosage: 300MG EVERY 12 HOURS INHALATION VIA NEBULIZER
     Route: 055
     Dates: start: 20160426, end: 20170311

REACTIONS (1)
  - Death [None]

NARRATIVE: CASE EVENT DATE: 20170311
